FAERS Safety Report 6528475-2 (Version None)
Quarter: 2009Q4

REPORT INFORMATION
  Report Type: 
  Country: None (occurrence: None)
  Receive Date: 20091229
  Receipt Date: 20091223
  Transmission Date: 20100525
  Serious: Yes (Hospitalization)
  Sender: FDA-Public Use
  Company Number: 2009SP043029

PATIENT
  Age: 77 Year
  Sex: Female

DRUGS (10)
  1. MIRTAZAPINE [Suspect]
     Indication: DRUG USE FOR UNKNOWN INDICATION
     Dosage: 15 MG; QD; PO
     Route: 048
     Dates: end: 20091107
  2. ESIDRIX [Suspect]
     Indication: DRUG USE FOR UNKNOWN INDICATION
     Dosage: 25 MG; BID; PO
     Route: 048
     Dates: start: 20090801, end: 20091107
  3. AUGMENTIN [Suspect]
     Indication: ANTI-INFECTIVE THERAPY
     Dosage: 1000 MG; TID; PO
     Route: 048
     Dates: start: 20090801, end: 20091107
  4. PREDNISONE [Suspect]
     Indication: POLYARTERITIS NODOSA
     Dosage: 50 MG; QD; PO
     Route: 048
     Dates: start: 20090625, end: 20091107
  5. SINEMET [Suspect]
     Indication: PARKINSON'S DISEASE
     Dosage: 2 DF; TID; PO
     Route: 048
     Dates: end: 20091107
  6. ALPRAZOLAM [Suspect]
     Indication: DRUG USE FOR UNKNOWN INDICATION
     Dosage: 0.625 MG; QD; PO
     Route: 048
     Dates: end: 20091107
  7. TEMERLT (NEBIVOLOL) /01339101/ [Suspect]
     Indication: DRUG USE FOR UNKNOWN INDICATION
     Dosage: 5 MG; QD; PO
     Route: 048
     Dates: end: 20091107
  8. OMEPRAZOLE [Suspect]
     Indication: DRUG USE FOR UNKNOWN INDICATION
     Dosage: 40 MG; QD; PO
     Route: 048
     Dates: end: 20090801
  9. AMLODIPINE [Suspect]
     Indication: DRUG USE FOR UNKNOWN INDICATION
     Dosage: 5 MG; QD; PO
     Route: 048
     Dates: end: 20091107
  10. CAPTOPRIL [Suspect]
     Dosage: 50 MG; BID; PO
     Route: 048
     Dates: start: 20090801, end: 20091107

REACTIONS (8)
  - ASTHENIA [None]
  - CYTOLYTIC HEPATITIS [None]
  - DYSKINESIA [None]
  - FALL [None]
  - GENERAL PHYSICAL HEALTH DETERIORATION [None]
  - HAEMOTHORAX [None]
  - LOSS OF CONSCIOUSNESS [None]
  - PSYCHOMOTOR RETARDATION [None]
